FAERS Safety Report 7773122-5 (Version None)
Quarter: 2011Q3

REPORT INFORMATION
  Report Type: 
  Country: None (occurrence: None)
  Receive Date: 20110922
  Receipt Date: 20110413
  Transmission Date: 20111222
  Serious: No
  Sender: FDA-Public Use
  Company Number: US-ASTRAZENECA-2009UW21598

PATIENT
  Age: 37 Year
  Sex: Female
  Weight: 136.1 kg

DRUGS (6)
  1. SEROQUEL [Suspect]
     Indication: DEPRESSION
     Route: 048
     Dates: start: 20020101, end: 20070701
  2. SEROQUEL [Suspect]
     Route: 048
     Dates: start: 20030402
  3. SEROQUEL [Suspect]
     Route: 048
     Dates: start: 20040101
  4. LEXAPRO [Concomitant]
     Dates: start: 20030402
  5. WELLBUTRIN SR [Concomitant]
     Dates: start: 20030829
  6. VICODIN [Concomitant]
     Indication: PAIN
     Dosage: 500-5 MG ONE TO TWO Q4 HRS PRN
     Dates: start: 20070718

REACTIONS (3)
  - TYPE 2 DIABETES MELLITUS [None]
  - WEIGHT INCREASED [None]
  - OBESITY [None]
